FAERS Safety Report 9099851 (Version 1)
Quarter: 2013Q1

REPORT INFORMATION
  Report Type: Spontaneous
  Country: FR (occurrence: FR)
  Receive Date: 20130215
  Receipt Date: 20130215
  Transmission Date: 20140127
  Serious: Yes (Death, Hospitalization)
  Sender: FDA-Public Use
  Company Number: PHHY2013FR014522

PATIENT
  Sex: Male
  Weight: 3.55 kg

DRUGS (1)
  1. COARTEM [Suspect]
     Dosage: (MATERNAL DOSE:04 DF)
     Route: 064
     Dates: start: 20071112

REACTIONS (3)
  - Neonatal asphyxia [Fatal]
  - Respiratory distress [Unknown]
  - Foetal exposure during pregnancy [Unknown]
